FAERS Safety Report 6646118-4 (Version None)
Quarter: 2010Q1

REPORT INFORMATION
  Report Type: 
  Country: None (occurrence: None)
  Receive Date: 20100323
  Receipt Date: 20100315
  Transmission Date: 20100710
  Serious: Yes (Hospitalization)
  Sender: FDA-Public Use
  Company Number: JP-PFIZER INC-2010011101

PATIENT
  Age: 61 Year
  Sex: Female
  Weight: 43 kg

DRUGS (12)
  1. CP-690,550 [Suspect]
     Indication: RHEUMATOID ARTHRITIS
     Dosage: 5 MG, 2X/DAY
     Route: 048
     Dates: start: 20080805, end: 20100125
  2. PREDNISOLONE [Suspect]
     Indication: RHEUMATOID ARTHRITIS
     Dosage: 2 MG, DAILY AFTER DINNER
     Route: 048
     Dates: start: 20081117
  3. METHOTREXATE [Suspect]
     Indication: RHEUMATOID ARTHRITIS
     Dosage: 2 MG, 2X/DAY,2-DAY A WEEK, AFTER BREAKFAST AND DINNER
     Route: 048
     Dates: start: 20071217, end: 20100125
  4. PREDONINE [Suspect]
     Indication: RHEUMATOID ARTHRITIS
     Dosage: 5 MG, DAILY, AFTER BREAKFAST
     Route: 048
     Dates: start: 20081117
  5. FOLIC ACID [Concomitant]
     Indication: PROPHYLAXIS
     Dosage: 5 MG, DAILY AFTER BREAKFAST
     Route: 048
     Dates: start: 20071217, end: 20100125
  6. LOXOPROFEN SODIUM [Concomitant]
     Indication: RHEUMATOID ARTHRITIS
     Dosage: 60 MG, 2X/DAY, AFTER BREAKFAST AND DINNER
     Route: 048
     Dates: start: 20080117
  7. RISEDRONATE SODIUM HYDRATE [Concomitant]
     Indication: OSTEOPOROSIS
     Dosage: 2.5 MG, DAILY, AT THE TIME OF AWAKENING
     Route: 048
     Dates: start: 20040401
  8. SELBEX [Concomitant]
     Indication: PROPHYLAXIS AGAINST GASTROINTESTINAL ULCER
     Dosage: 80 MG, 2X/DAY, AFTER BREAKFAST AND DINNER
     Route: 048
     Dates: start: 20080117
  9. FAMOTIDINE [Concomitant]
     Indication: PROPHYLAXIS AGAINST GASTROINTESTINAL ULCER
     Dosage: 20 MG, DAILY, AFTER DINNER
     Route: 048
     Dates: start: 20040520
  10. MAGNESIUM OXIDE [Concomitant]
     Indication: CONSTIPATION
     Dosage: 0.5 G, 3X/DAY, AFTER EACH MEAL
     Route: 048
     Dates: start: 20091026
  11. LAC B [Concomitant]
     Indication: ABDOMINAL PAIN
     Dosage: 1 G, 3X/DAY, AFTER EACH MEAL
     Route: 048
     Dates: start: 20091221, end: 20100125
  12. HYALEIN [Concomitant]
     Indication: DRY EYE
     Dosage: UNK, 3X/DAY FOR BOTH EYES
     Route: 047
     Dates: start: 20080602

REACTIONS (1)
  - HERPES ZOSTER [None]
